FAERS Safety Report 6862632-0 (Version None)
Quarter: 2010Q3

REPORT INFORMATION
  Report Type: 
  Country: None (occurrence: None)
  Receive Date: 20100716
  Receipt Date: 20100707
  Transmission Date: 20110219
  Serious: Yes (Hospitalization)
  Sender: FDA-Public Use
  Company Number: 2010S1000175

PATIENT
  Age: 83 Year
  Sex: Female
  Weight: 53.5 kg

DRUGS (17)
  1. LIVALO [Suspect]
     Indication: HYPERLIPIDAEMIA
     Dosage: 1 MG; 1X; PO
     Route: 048
     Dates: start: 20091203, end: 20091224
  2. MINOPEN (MINOCYCLINE HYDROCHLORIDE) [Suspect]
     Indication: PNEUMONIA MYCOPLASMAL
     Dosage: 100 MG; BID; IVDRP
     Route: 041
     Dates: start: 20091203, end: 20091218
  3. KLARICID [Concomitant]
  4. NORVASC [Concomitant]
  5. DIOVAN /01319601/ [Concomitant]
  6. METHYCOBAL /00324901/ [Concomitant]
  7. FOSAMAC [Concomitant]
  8. CLINORIL [Concomitant]
  9. DEPAS [Concomitant]
  10. URSO /00465701/ [Concomitant]
  11. TAKEPRON [Concomitant]
  12. LASIX [Concomitant]
  13. ALDACTONE [Concomitant]
  14. RINDERON-VG [Concomitant]
  15. AZUNOL #1 [Concomitant]
  16. ZYRTEC [Concomitant]
  17. GARENOXACIN MESILATE HYDRATE [Concomitant]

REACTIONS (6)
  - COMMUNITY ACQUIRED INFECTION [None]
  - INTERSTITIAL LUNG DISEASE [None]
  - LYMPHOCYTE STIMULATION TEST POSITIVE [None]
  - PNEUMONIA MYCOPLASMAL [None]
  - PRURITUS [None]
  - RASH [None]
